FAERS Safety Report 23910678 (Version 1)
Quarter: 2024Q2

REPORT INFORMATION
  Report Type: Spontaneous
  Country: US (occurrence: US)
  Receive Date: 20240528
  Receipt Date: 20240528
  Transmission Date: 20240716
  Serious: No
  Sender: FDA-Public Use
  Company Number: US-AVADEL CNS PHARMACEUTICALS, LLC-2024AVA00109

PATIENT
  Age: 64 Year
  Sex: Male

DRUGS (18)
  1. LUMRYZ [Suspect]
     Active Substance: SODIUM OXYBATE
     Indication: Narcolepsy
     Dosage: 9 G, ONCE NIGHTLY
     Route: 048
     Dates: start: 20240201
  2. LEVOTHYROXINE [Concomitant]
     Active Substance: LEVOTHYROXINE\LEVOTHYROXINE SODIUM
  3. PANTOPRAZOLE [Concomitant]
     Active Substance: PANTOPRAZOLE
     Dosage: 40 MG, 1X/DAY
  4. INSULIN NOS [Concomitant]
     Active Substance: INSULIN NOS
  5. TAMSULOSIN [Concomitant]
     Active Substance: TAMSULOSIN
  6. LISINOPRIL [Concomitant]
     Active Substance: LISINOPRIL
  7. SUNOSI [Concomitant]
     Active Substance: SOLRIAMFETOL
  8. APIXABAN [Concomitant]
     Active Substance: APIXABAN
  9. VITAMINS NOS [Concomitant]
     Active Substance: VITAMINS
  10. TRULICITY [Concomitant]
     Active Substance: DULAGLUTIDE
  11. ROSUVASTATIN [Concomitant]
     Active Substance: ROSUVASTATIN
  12. QVAR REDIHALER [Concomitant]
     Active Substance: BECLOMETHASONE DIPROPIONATE
  13. METOPROLOL [Concomitant]
     Active Substance: METOPROLOL
  14. FOLIC ACID [Concomitant]
     Active Substance: FOLIC ACID
  15. POTASSIUM CHLORIDE [Concomitant]
     Active Substance: POTASSIUM CHLORIDE
     Dosage: 20 MEQ, 4X/DAY
  16. ROPINIROLE [Concomitant]
     Active Substance: ROPINIROLE
  17. ASPIRIN [Concomitant]
     Active Substance: ASPIRIN
  18. MONTELUKAST [Concomitant]
     Active Substance: MONTELUKAST SODIUM

REACTIONS (1)
  - Poor quality sleep [Not Recovered/Not Resolved]

NARRATIVE: CASE EVENT DATE: 20240201
